FAERS Safety Report 23526085 (Version 6)
Quarter: 2025Q3

REPORT INFORMATION
  Report Type: Spontaneous
  Country: CA (occurrence: CA)
  Receive Date: 20240215
  Receipt Date: 20250812
  Transmission Date: 20251021
  Serious: Yes (Death, Life-Threatening, Hospitalization, Other)
  Sender: NOVARTIS
  Company Number: CA-002147023-NVSC2024CA031732

PATIENT
  Age: 6 Day

DRUGS (50)
  1. DEXAMETHASONE [Suspect]
     Active Substance: DEXAMETHASONE
     Indication: Cholestasis
     Route: 065
  2. DEXAMETHASONE [Suspect]
     Active Substance: DEXAMETHASONE
     Indication: Bronchopulmonary dysplasia
     Route: 065
  3. DEXAMETHASONE [Suspect]
     Active Substance: DEXAMETHASONE
     Dosage: 0.15 MG/KG, QD
     Route: 031
  4. VANCOMYCIN HYDROCHLORIDE [Suspect]
     Active Substance: VANCOMYCIN HYDROCHLORIDE
     Indication: Septic shock
     Route: 065
  5. VANCOMYCIN HYDROCHLORIDE [Suspect]
     Active Substance: VANCOMYCIN HYDROCHLORIDE
     Indication: Bacillus infection
     Route: 065
  6. VANCOMYCIN HYDROCHLORIDE [Suspect]
     Active Substance: VANCOMYCIN HYDROCHLORIDE
     Indication: Antibiotic therapy
  7. VANCOMYCIN HYDROCHLORIDE [Suspect]
     Active Substance: VANCOMYCIN HYDROCHLORIDE
     Indication: Septic shock
     Route: 065
  8. VANCOMYCIN HYDROCHLORIDE [Suspect]
     Active Substance: VANCOMYCIN HYDROCHLORIDE
     Indication: Bacillus infection
     Route: 042
  9. VANCOMYCIN HYDROCHLORIDE [Suspect]
     Active Substance: VANCOMYCIN HYDROCHLORIDE
     Indication: Antibiotic therapy
     Route: 065
  10. TOBRAMYCIN [Suspect]
     Active Substance: TOBRAMYCIN
     Indication: Septic shock
     Route: 065
  11. TOBRAMYCIN [Suspect]
     Active Substance: TOBRAMYCIN
     Indication: Antibiotic prophylaxis
     Route: 065
  12. TOBRAMYCIN [Suspect]
     Active Substance: TOBRAMYCIN
     Indication: Bacillus infection
     Route: 065
  13. TOBRAMYCIN [Suspect]
     Active Substance: TOBRAMYCIN
     Indication: Antibiotic therapy
  14. TOBRAMYCIN [Suspect]
     Active Substance: TOBRAMYCIN
     Indication: Amniotic cavity infection
  15. MEROPENEM [Suspect]
     Active Substance: MEROPENEM
     Indication: Septic shock
     Route: 065
  16. MEROPENEM [Suspect]
     Active Substance: MEROPENEM
     Indication: Bacillus infection
     Route: 065
  17. MEROPENEM [Suspect]
     Active Substance: MEROPENEM
     Indication: Antibiotic therapy
     Route: 065
  18. AMPHOTERICIN B [Suspect]
     Active Substance: AMPHOTERICIN B
     Indication: Septic shock
     Route: 065
  19. AMPHOTERICIN B [Suspect]
     Active Substance: AMPHOTERICIN B
     Indication: Bacillus infection
     Route: 065
  20. AMPHOTERICIN B [Suspect]
     Active Substance: AMPHOTERICIN B
     Indication: Antibiotic therapy
  21. AMPICILLIN [Suspect]
     Active Substance: AMPICILLIN
     Indication: Septic shock
     Route: 042
  22. AMPICILLIN [Suspect]
     Active Substance: AMPICILLIN
     Indication: Antibiotic prophylaxis
     Route: 065
  23. AMPICILLIN [Suspect]
     Active Substance: AMPICILLIN
     Indication: Bacillus infection
     Route: 042
  24. AMPICILLIN [Suspect]
     Active Substance: AMPICILLIN
     Indication: Antibiotic therapy
  25. AMPICILLIN [Suspect]
     Active Substance: AMPICILLIN
     Indication: Amniotic cavity infection
  26. FLUCONAZOLE [Suspect]
     Active Substance: FLUCONAZOLE
     Indication: Septic shock
     Route: 065
  27. FLUCONAZOLE [Suspect]
     Active Substance: FLUCONAZOLE
     Indication: Bacillus infection
     Route: 065
  28. FLUCONAZOLE [Suspect]
     Active Substance: FLUCONAZOLE
     Indication: Antibiotic therapy
     Route: 042
  29. PIPERACILLIN SODIUM\TAZOBACTAM SODIUM [Suspect]
     Active Substance: PIPERACILLIN SODIUM\TAZOBACTAM SODIUM
     Indication: Septic shock
     Route: 065
  30. PIPERACILLIN SODIUM\TAZOBACTAM SODIUM [Suspect]
     Active Substance: PIPERACILLIN SODIUM\TAZOBACTAM SODIUM
     Indication: Antibiotic therapy
     Route: 065
  31. PIPERACILLIN SODIUM\TAZOBACTAM SODIUM [Suspect]
     Active Substance: PIPERACILLIN SODIUM\TAZOBACTAM SODIUM
     Indication: Bacillus infection
  32. SULFAMETHOXAZOLE AND TRIMETHOPRIM [Suspect]
     Active Substance: SULFAMETHOXAZOLE\TRIMETHOPRIM
     Indication: Septic shock
     Route: 065
  33. SULFAMETHOXAZOLE AND TRIMETHOPRIM [Suspect]
     Active Substance: SULFAMETHOXAZOLE\TRIMETHOPRIM
     Indication: Bacillus infection
     Route: 065
  34. SULFAMETHOXAZOLE AND TRIMETHOPRIM [Suspect]
     Active Substance: SULFAMETHOXAZOLE\TRIMETHOPRIM
     Indication: Antibiotic therapy
     Route: 065
  35. VANCOMYCIN [Suspect]
     Active Substance: VANCOMYCIN
     Indication: Septic shock
     Route: 065
  36. VANCOMYCIN [Suspect]
     Active Substance: VANCOMYCIN
     Indication: Bacillus infection
     Route: 065
  37. VANCOMYCIN [Suspect]
     Active Substance: VANCOMYCIN
     Indication: Antibiotic therapy
  38. DEXAMETHASONE SODIUM PHOSPHATE [Suspect]
     Active Substance: DEXAMETHASONE SODIUM PHOSPHATE
     Indication: Chronic respiratory disease
     Route: 014
  39. DEXAMETHASONE SODIUM PHOSPHATE [Suspect]
     Active Substance: DEXAMETHASONE SODIUM PHOSPHATE
     Indication: Cholestasis
     Route: 065
  40. AMPHOTERICIN B [Suspect]
     Active Substance: AMPHOTERICIN B
     Indication: Septic shock
     Route: 065
  41. AMPHOTERICIN B [Suspect]
     Active Substance: AMPHOTERICIN B
     Indication: Bacillus infection
     Route: 065
  42. AMPHOTERICIN B [Suspect]
     Active Substance: AMPHOTERICIN B
     Indication: Antibiotic therapy
     Route: 065
  43. MEROPENEM [Suspect]
     Active Substance: MEROPENEM
     Indication: Septic shock
     Route: 065
  44. MEROPENEM [Suspect]
     Active Substance: MEROPENEM
     Indication: Bacillus infection
     Route: 065
  45. MEROPENEM [Suspect]
     Active Substance: MEROPENEM
     Indication: Antibiotic therapy
     Route: 065
  46. SULFATRIM [Suspect]
     Active Substance: SULFAMETHOXAZOLE\TRIMETHOPRIM
     Indication: Septic shock
     Route: 065
  47. SULFATRIM [Suspect]
     Active Substance: SULFAMETHOXAZOLE\TRIMETHOPRIM
     Indication: Bacillus infection
  48. SULFATRIM [Suspect]
     Active Substance: SULFAMETHOXAZOLE\TRIMETHOPRIM
     Indication: Antibiotic therapy
  49. DEXAMETHASONE [Concomitant]
     Active Substance: DEXAMETHASONE
     Indication: Bronchopulmonary dysplasia
     Route: 065
  50. DEXAMETHASONE [Concomitant]
     Active Substance: DEXAMETHASONE
     Indication: Cholestasis
     Dosage: 0.15 MG/KG, 1 EVERY 1 DAYS
     Route: 065

REACTIONS (5)
  - Infection [Fatal]
  - Respiratory disorder [Fatal]
  - Off label use [Fatal]
  - Drug ineffective [Fatal]
  - Septic shock [Fatal]
